FAERS Safety Report 23052993 (Version 1)
Quarter: 2023Q4

REPORT INFORMATION
  Report Type: Report from Study
  Country: US (occurrence: US)
  Receive Date: 20231011
  Receipt Date: 20231011
  Transmission Date: 20240110
  Serious: Yes (Other)
  Sender: FDA-Public Use
  Company Number: US-ABBVIE-5443448

PATIENT
  Sex: Male

DRUGS (1)
  1. VENCLEXTA [Suspect]
     Active Substance: VENETOCLAX
     Indication: Acute myeloid leukaemia
     Dosage: FORM STREGNTH: 100 MG, TAKE 1 TABLET BY MOUTH DAILY WITH FOOD AND WATER FOR 14 DAYS OF 28 DAY CYCLE
     Route: 048

REACTIONS (2)
  - Dialysis [Unknown]
  - Off label use [Unknown]
